FAERS Safety Report 9667832 (Version 2)
Quarter: 2014Q1

REPORT INFORMATION
  Report Type: Spontaneous
  Country: US (occurrence: None)
  Receive Date: 20131101
  Receipt Date: 20140304
  Transmission Date: 20141002
  Serious: Yes (Other)
  Sender: FDA-Public Use
  Company Number: 2013-US-002366

PATIENT
  Age: 48 Year
  Sex: Male

DRUGS (3)
  1. XYREM [Suspect]
     Indication: SLEEP DISORDER
     Dosage: 2.25G, BID, ORAL
     Route: 048
     Dates: start: 20131017, end: 20131025
  2. MORPHINE (MORPHINE HYDROCHLORIDE) [Concomitant]
  3. DIAZEPAM (DIAZEPAM) [Concomitant]

REACTIONS (6)
  - Foot operation [None]
  - Ankle operation [None]
  - Intentional drug misuse [None]
  - Joint injury [None]
  - Arthrodesis [None]
  - Incorrect dose administered [None]
